FAERS Safety Report 25169813 (Version 1)
Quarter: 2025Q2

REPORT INFORMATION
  Report Type: Spontaneous
  Country: US (occurrence: US)
  Receive Date: 20250407
  Receipt Date: 20250407
  Transmission Date: 20250716
  Serious: Yes (Life-Threatening)
  Sender: BAYER
  Company Number: US-BAYER-2025A043181

PATIENT
  Sex: Female

DRUGS (1)
  1. AFRIN ORIGINAL NASAL [Suspect]
     Active Substance: OXYMETAZOLINE HYDROCHLORIDE
     Indication: Epistaxis

REACTIONS (1)
  - Product prescribing issue [Unknown]
